FAERS Safety Report 21879729 (Version 1)
Quarter: 2023Q1

REPORT INFORMATION
  Report Type: Spontaneous
  Country: US (occurrence: US)
  Receive Date: 20230118
  Receipt Date: 20230118
  Transmission Date: 20230418
  Serious: No
  Sender: FDA-Public Use
  Company Number: US-PERRIGO-22US010010

PATIENT
  Age: 3 Year
  Sex: Male
  Weight: 16.327 kg

DRUGS (4)
  1. IBUPROFEN [Suspect]
     Active Substance: IBUPROFEN
     Indication: Off label use
     Dosage: 20 MG, QD
     Route: 048
     Dates: start: 20220712, end: 20220717
  2. IBUPROFEN [Suspect]
     Active Substance: IBUPROFEN
     Indication: Pyrexia
     Dosage: 40 TO 60 MG, QD
     Route: 048
     Dates: start: 20220712, end: 20220717
  3. AMOXICILLIN\CLAVULANATE POTASSIUM [Concomitant]
     Active Substance: AMOXICILLIN\CLAVULANATE POTASSIUM
     Indication: Ear infection
     Dosage: UNK
     Route: 065
     Dates: start: 20220712, end: 20220716
  4. AMOXICILLIN\CLAVULANATE POTASSIUM [Concomitant]
     Active Substance: AMOXICILLIN\CLAVULANATE POTASSIUM
     Indication: Pharyngitis

REACTIONS (8)
  - Throat irritation [Recovered/Resolved]
  - Screaming [Recovered/Resolved]
  - Bruxism [Recovered/Resolved]
  - Hypophagia [Recovered/Resolved]
  - Vomiting [Unknown]
  - Dysphagia [Recovered/Resolved]
  - Off label use [Recovered/Resolved]
  - Underdose [Recovered/Resolved]

NARRATIVE: CASE EVENT DATE: 20220701
